FAERS Safety Report 6041144-0 (Version None)
Quarter: 2009Q1

REPORT INFORMATION
  Report Type: 
  Country: None (occurrence: None)
  Receive Date: 20090116
  Receipt Date: 20080904
  Transmission Date: 20090719
  Serious: No
  Sender: FDA-Public Use
  Company Number: US-BRISTOL-MYERS SQUIBB COMPANY-14324495

PATIENT
  Age: 32 Year
  Sex: Female
  Weight: 82 kg

DRUGS (4)
  1. ABILIFY [Suspect]
     Indication: MANIA
     Dates: start: 20080811
  2. WELLBUTRIN XL [Concomitant]
  3. AMBIEN CR [Concomitant]
  4. XANAX [Concomitant]

REACTIONS (2)
  - FEELING JITTERY [None]
  - RESTLESSNESS [None]
